FAERS Safety Report 5755512-5 (Version None)
Quarter: 2008Q2

REPORT INFORMATION
  Report Type: 
  Country: None (occurrence: None)
  Receive Date: 20080528
  Receipt Date: 20080515
  Transmission Date: 20081010
  Serious: Yes (Life-Threatening, Other)
  Sender: FDA-Public Use
  Company Number: 100#03#2008-02700

PATIENT
  Age: 68 Year
  Sex: Male

DRUGS (6)
  1. CITALOPRAM HYDROBROMIDE [Suspect]
     Indication: DEPRESSION
     Dosage: 10 MG ONCE DAILY ORAL; 20 MG ONCE DAILY, ORAL
     Route: 048
     Dates: start: 20071220, end: 20080204
  2. CITALOPRAM HYDROBROMIDE [Suspect]
     Indication: DEPRESSION
     Dosage: 10 MG ONCE DAILY ORAL; 20 MG ONCE DAILY, ORAL
     Route: 048
     Dates: start: 20080210, end: 20080304
  3. ENOXAPARIN SODIUM [Concomitant]
  4. FERROUS FUMARATE [Concomitant]
  5. LANSOPRAZOLE [Concomitant]
  6. SLOW SODIUM (SODIUM CHLORIDE) [Concomitant]

REACTIONS (3)
  - INAPPROPRIATE ANTIDIURETIC HORMONE SECRETION [None]
  - PULSE ABSENT [None]
  - SYNCOPE [None]
